FAERS Safety Report 6915565-5 (Version None)
Quarter: 2010Q3

REPORT INFORMATION
  Report Type: 
  Country: None (occurrence: None)
  Receive Date: 20100804
  Receipt Date: 20100726
  Transmission Date: 20110219
  Serious: Yes (Other)
  Sender: FDA-Public Use
  Company Number: 2010SP040616

PATIENT
  Age: 70 Year
  Sex: Female

DRUGS (1)
  1. VECURONIUM BROMIDE [Suspect]
     Indication: MECHANICAL VENTILATION
     Dosage: IV
     Route: 042

REACTIONS (5)
  - ALANINE AMINOTRANSFERASE INCREASED [None]
  - ASPARTATE AMINOTRANSFERASE INCREASED [None]
  - BLOOD CREATINE PHOSPHOKINASE INCREASED [None]
  - CARDIAC DISORDER [None]
  - MUSCLE DISORDER [None]
